FAERS Safety Report 7491838-5 (Version None)
Quarter: 2011Q2

REPORT INFORMATION
  Report Type: 
  Country: None (occurrence: None)
  Receive Date: 20110519
  Receipt Date: 20110511
  Transmission Date: 20111010
  Serious: Yes (Hospitalization)
  Sender: FDA-Public Use
  Company Number: JP-BRISTOL-MYERS SQUIBB COMPANY-15673940

PATIENT
  Age: 74 Year
  Sex: Male
  Weight: 63 kg

DRUGS (13)
  1. LASIX [Concomitant]
     Route: 048
  2. ERBITUX [Suspect]
     Indication: COLON CANCER
     Dosage: 15DEC10-700 MG 430MG:22DEC10. 400MG:29DEC10.430MG:06JAN2011-
     Route: 041
     Dates: start: 20101215
  3. POLARAMINE [Concomitant]
     Indication: PREMEDICATION
     Route: 042
     Dates: start: 20101215
  4. DEXART [Concomitant]
     Indication: PREMEDICATION
     Route: 042
     Dates: start: 20101215
  5. ALOXI [Concomitant]
     Indication: ANTIEMETIC SUPPORTIVE CARE
     Route: 042
     Dates: start: 20110113
  6. EMEND [Concomitant]
     Indication: ANTIEMETIC SUPPORTIVE CARE
     Dosage: 80MG
     Dates: start: 20110210
  7. ALDACTONE [Concomitant]
     Route: 048
  8. RABEPRAZOLE SODIUM [Concomitant]
     Route: 048
  9. FLUOROURACIL [Concomitant]
     Indication: COLON CANCER
     Dosage: 2650 MG: 29DEC10.3250 MG: 13JAN2011-
     Route: 041
     Dates: start: 20101229
  10. CPT-11 [Concomitant]
     Indication: COLON CANCER
     Route: 042
     Dates: start: 20110210
  11. LEUCOVORIN CALCIUM [Concomitant]
     Indication: COLON CANCER
     Route: 042
     Dates: start: 20101229
  12. OXALIPLATIN [Concomitant]
     Indication: COLON CANCER
     Route: 042
     Dates: start: 20101229
  13. URSO 250 [Concomitant]
     Route: 048

REACTIONS (1)
  - INTESTINAL OBSTRUCTION [None]
